FAERS Safety Report 7636834-X (Version None)
Quarter: 2011Q3

REPORT INFORMATION
  Report Type: 
  Country: None (occurrence: None)
  Receive Date: 20110726
  Receipt Date: 20110614
  Transmission Date: 20111222
  Serious: No
  Sender: FDA-Public Use
  Company Number: US-BAYER-2011-051711

PATIENT
  Sex: Female

DRUGS (3)
  1. ANALGESICS [Concomitant]
     Dosage: 1 DF, UNK
  2. ALEVE (CAPLET) [Suspect]
     Dosage: 2 DF, UNK
  3. IBUPROFEN [Concomitant]
     Dosage: 3 DF, UNK

REACTIONS (1)
  - MALAISE [None]
